FAERS Safety Report 7888541-6 (Version None)
Quarter: 2011Q4

REPORT INFORMATION
  Report Type: 
  Country: None (occurrence: None)
  Receive Date: 20111103
  Receipt Date: 20111028
  Transmission Date: 20120403
  Serious: Yes (Other)
  Sender: FDA-Public Use
  Company Number: PHEH2011US08271

PATIENT
  Sex: Female

DRUGS (1)
  1. GILENYA [Suspect]
     Dosage: 0.5 MG, QD
     Route: 048
     Dates: start: 20110607, end: 20111023

REACTIONS (6)
  - VISION BLURRED [None]
  - ROAD TRAFFIC ACCIDENT [None]
  - CENTRAL NERVOUS SYSTEM LESION [None]
  - HYPOAESTHESIA [None]
  - DIPLOPIA [None]
  - BURNING SENSATION [None]
